FAERS Safety Report 4818405-3 (Version None)
Quarter: 2005Q4

REPORT INFORMATION
  Report Type: 
  Country: None (occurrence: None)
  Receive Date: 20051031
  Receipt Date: 20051014
  Transmission Date: 20060501
  Serious: Yes (Hospitalization)
  Sender: FDA-Public Use
  Company Number: 218907

PATIENT
  Age: 63 Year
  Sex: Female
  Weight: 84 kg

DRUGS (7)
  1. AVASTIN [Suspect]
     Indication: COLORECTAL CANCER METASTATIC
     Dosage: 420 MG, Q2W, INTRAVENOUS
     Route: 042
     Dates: start: 20050523
  2. IRINOTECAN HCL [Suspect]
     Indication: COLORECTAL CANCER METASTATIC
     Dosage: 345 MG, Q2W, INTRAVENOUS
     Route: 042
     Dates: start: 20050523
  3. LEUCOVORIN CALCIUM [Suspect]
     Indication: COLORECTAL CANCER METASTATIC
     Dosage: 768 MG, Q2W, INTRAVENOUS
     Route: 042
     Dates: start: 20050523
  4. FLUOROURACIL [Suspect]
     Indication: COLORECTAL CANCER METASTATIC
     Dosage: SEE IMAGE, IV BOLUS
     Route: 040
     Dates: start: 20050523
  5. DALTEPARIN (DALTEPARIN SODIUM) [Concomitant]
  6. NISTATINA (NYSTATIN) [Concomitant]
  7. CORSODYL (CHLORHEXIDINE GLUCONATE) [Concomitant]

REACTIONS (3)
  - DIARRHOEA [None]
  - STREPTOCOCCAL INFECTION [None]
  - URINARY TRACT INFECTION [None]
